FAERS Safety Report 21640002 (Version 3)
Quarter: 2023Q2

REPORT INFORMATION
  Report Type: Report from Study
  Country: US (occurrence: US)
  Receive Date: 20221124
  Receipt Date: 20230406
  Transmission Date: 20230721
  Serious: Yes (Other)
  Sender: FDA-Public Use
  Company Number: US-ABBVIE-4213009

PATIENT
  Age: 57 Year
  Sex: Female

DRUGS (1)
  1. HUMIRA [Suspect]
     Active Substance: ADALIMUMAB
     Indication: Hidradenitis
     Route: 058

REACTIONS (8)
  - Shoulder arthroplasty [Unknown]
  - Weight decreased [Recovered/Resolved]
  - Asthenia [Unknown]
  - Furuncle [Not Recovered/Not Resolved]
  - Urinary incontinence [Recovering/Resolving]
  - Depression [Unknown]
  - Cerebrovascular accident [Unknown]
  - Unevaluable event [Unknown]

NARRATIVE: CASE EVENT DATE: 20220211
